FAERS Safety Report 6708261-0 (Version None)
Quarter: 2010Q2

REPORT INFORMATION
  Report Type: 
  Country: None (occurrence: None)
  Receive Date: 20100503
  Receipt Date: 20090401
  Transmission Date: 20101027
  Serious: No
  Sender: FDA-Public Use
  Company Number: US-ASTRAZENECA-2009UW08305

PATIENT
  Age: 48 Year
  Sex: Female
  Weight: 77.1 kg

DRUGS (6)
  1. NEXIUM [Suspect]
     Route: 048
  2. OPANA [Suspect]
     Indication: BACK PAIN
     Dates: start: 20070101
  3. DOXYCYCLINE [Suspect]
  4. VALIUM [Suspect]
  5. EFFEXOR [Suspect]
  6. FLEXERIL [Suspect]

REACTIONS (3)
  - ABDOMINAL PAIN UPPER [None]
  - NAUSEA [None]
  - VOMITING [None]
